FAERS Safety Report 9462151 (Version 1)
Quarter: 2013Q3

REPORT INFORMATION
  Report Type: Spontaneous
  Country: US (occurrence: None)
  Receive Date: 20130815
  Receipt Date: 20130815
  Transmission Date: 20140515
  Serious: Yes (Hospitalization)
  Sender: FDA-Public Use
  Company Number: None

PATIENT
  Age: 55 Year
  Sex: Female
  Weight: 104.5 kg

DRUGS (9)
  1. RAMIPRIL [Suspect]
     Indication: HYPERTENSION
     Dosage: 5MG  DAILY  PO?CHRONIC
     Route: 048
  2. METOPROLOL [Concomitant]
  3. ZOCOR [Concomitant]
  4. PLAVIX [Concomitant]
  5. LEVOXYL [Concomitant]
  6. METFORMIN [Concomitant]
  7. FISH OIL [Concomitant]
  8. PREDNISONE [Concomitant]
  9. ASPIRIN [Concomitant]

REACTIONS (11)
  - Urticaria [None]
  - Vomiting [None]
  - Vomiting [None]
  - Diarrhoea [None]
  - Chest pain [None]
  - Hyperhidrosis [None]
  - Pallor [None]
  - Rash generalised [None]
  - Hypersensitivity [None]
  - Lip swelling [None]
  - Angioedema [None]
